FAERS Safety Report 8573950-2 (Version None)
Quarter: 2012Q3

REPORT INFORMATION
  Report Type: 
  Country: None (occurrence: None)
  Receive Date: 20120806
  Receipt Date: 20100209
  Transmission Date: 20120928
  Serious: Yes (Death, Hospitalization, Other)
  Sender: FDA-Public Use
  Company Number: DE-CELGENEUS-062-21880-12053529

PATIENT
  Age: 77 Year
  Sex: Female
  Weight: 77 kg

DRUGS (12)
  1. DEXAMETHASONE [Suspect]
     Dosage: 8 MILLIGRAM
     Route: 065
     Dates: start: 20090813, end: 20090909
  2. REVLIMID [Suspect]
     Indication: MULTIPLE MYELOMA
     Dosage: 15 MILLIGRAM
     Route: 048
     Dates: start: 20081125
  3. REVLIMID [Suspect]
     Dosage: 15 MILLIGRAM
     Route: 048
     Dates: end: 20090118
  4. DEXAMETHASONE [Suspect]
     Dosage: 16 MILLIGRAM
     Route: 065
     Dates: start: 20090423
  5. DEXAMETHASONE [Suspect]
     Dosage: 16 MILLIGRAM
     Route: 065
     Dates: start: 20090225
  6. REVLIMID [Suspect]
     Dosage: 15 MILLIGRAM
     Route: 048
     Dates: start: 20090129
  7. REVLIMID [Suspect]
     Dosage: 15 MILLIGRAM
     Route: 048
     Dates: start: 20090813, end: 20090909
  8. ALIZAPRIDE [Concomitant]
     Route: 065
  9. DEXAMETHASONE [Suspect]
     Dosage: 40 MILLIGRAM
     Route: 065
  10. DEXAMETHASONE [Suspect]
     Dosage: 8 MILLIGRAM
     Route: 065
     Dates: start: 20090521
  11. DEXAMETHASONE [Suspect]
     Indication: MULTIPLE MYELOMA
     Dosage: 40 MILLIGRAM
     Route: 065
     Dates: start: 20081125
  12. DALTEPARIN SODIUM [Concomitant]
     Indication: ANTICOAGULANT THERAPY
     Route: 065

REACTIONS (12)
  - DRY SKIN [None]
  - WEIGHT DECREASED [None]
  - HYPERSENSITIVITY [None]
  - SKIN LESION [None]
  - NEOPLASM [None]
  - BLOOD CREATININE INCREASED [None]
  - RASH [None]
  - OEDEMA [None]
  - DIARRHOEA INFECTIOUS [None]
  - ANAEMIA [None]
  - LACTOSE INTOLERANCE [None]
  - LEUKOPENIA [None]
